FAERS Safety Report 6625607-2 (Version None)
Quarter: 2010Q1

REPORT INFORMATION
  Report Type: 
  Country: None (occurrence: None)
  Receive Date: 20100223
  Receipt Date: 20091112
  Transmission Date: 20100710
  Serious: No
  Sender: FDA-Public Use
  Company Number: 8054549

PATIENT
  Sex: Female

DRUGS (1)
  1. CERTOLIZUMAB PEGOL (UCB, INC) [Suspect]
     Indication: RHEUMATOID ARTHRITIS
     Dosage: 400 MG 1X/2 WEEKS, - NR OF DOSES: 1 SUBCUTANEOUS
     Route: 058
     Dates: start: 20091001

REACTIONS (3)
  - ARTHRALGIA [None]
  - FATIGUE [None]
  - INJECTION SITE DISCOLOURATION [None]
